FAERS Safety Report 4792897-0 (Version None)
Quarter: 2005Q4

REPORT INFORMATION
  Report Type: 
  Country: None (occurrence: None)
  Receive Date: 20051010
  Receipt Date: 20051005
  Transmission Date: 20060501
  Serious: Yes (Hospitalization)
  Sender: FDA-Public Use
  Company Number: 2005UW14942

PATIENT
  Sex: Female

DRUGS (3)
  1. PULMICORT RESPULES [Suspect]
     Indication: BRONCHITIS
     Route: 055
  2. METHYLDOPA [Concomitant]
  3. LEXAPRO [Concomitant]

REACTIONS (2)
  - DYSPHONIA [None]
  - WHEEZING [None]
